FAERS Safety Report 9438136 (Version 1)
Quarter: 2013Q3

REPORT INFORMATION
  Report Type: Spontaneous
  Country: US (occurrence: US)
  Receive Date: 20130802
  Receipt Date: 20130802
  Transmission Date: 20140515
  Serious: No
  Sender: FDA-Public Use
  Company Number: US-BRISTOL-MYERS SQUIBB COMPANY-16842320

PATIENT
  Age: 68 Year
  Sex: Female
  Weight: 86.17 kg

DRUGS (9)
  1. WARFARIN SODIUM [Suspect]
     Indication: DEEP VEIN THROMBOSIS
     Dosage: 2 WEEKS AGO,SWITCHED TO PILLS?2MG/DY ALSO TKN?6MG AT COMPLETION
     Route: 048
     Dates: start: 20120710, end: 20120814
  2. LOVENOX [Suspect]
  3. AMLODIPINE [Concomitant]
  4. CLONIDINE [Concomitant]
  5. IRBESARTAN [Concomitant]
  6. PRAVASTATIN SODIUM [Concomitant]
  7. CARVEDILOL [Concomitant]
  8. FERROUS SULFATE [Concomitant]
  9. LASIX [Concomitant]

REACTIONS (2)
  - Pain [Unknown]
  - Arthralgia [Unknown]
